FAERS Safety Report 17360737 (Version 1)
Quarter: 2020Q1

REPORT INFORMATION
  Report Type: Spontaneous
  Country: US (occurrence: US)
  Receive Date: 20200117
  Receipt Date: 20200117
  Transmission Date: 20200409
  Serious: No
  Sender: FDA-Public Use
  Company Number: None

PATIENT
  Age: 64 Year
  Sex: Female

DRUGS (1)
  1. AUBAGIO [Suspect]
     Active Substance: TERIFLUNOMIDE
     Indication: MULTIPLE SCLEROSIS
     Route: 048
     Dates: start: 201907

REACTIONS (5)
  - Dry skin [None]
  - Alopecia [None]
  - Erythema [None]
  - Pruritus [None]
  - Skin exfoliation [None]

NARRATIVE: CASE EVENT DATE: 20200117
